FAERS Safety Report 12481746 (Version 2)
Quarter: 2016Q2

REPORT INFORMATION
  Report Type: Spontaneous
  Country: PL (occurrence: PL)
  Receive Date: 20160620
  Receipt Date: 20160630
  Transmission Date: 20160815
  Serious: Yes (Hospitalization, Other)
  Sender: FDA-Public Use
  Company Number: PHHY2016PL081071

PATIENT
  Age: 31 Year
  Sex: Female

DRUGS (2)
  1. KETOPROFEN. [Suspect]
     Active Substance: KETOPROFEN
     Indication: ANALGESIC THERAPY
     Route: 065
  2. LIGNOCAINE [Concomitant]
     Active Substance: LIDOCAINE HYDROCHLORIDE
     Indication: LOCAL ANAESTHESIA
     Route: 065

REACTIONS (5)
  - Quadriparesis [Unknown]
  - Anaphylactic reaction [Unknown]
  - Cardiac arrest [Unknown]
  - Systemic mastocytosis [Unknown]
  - Ischaemic stroke [Unknown]
